FAERS Safety Report 6611026-1 (Version None)
Quarter: 2010Q1

REPORT INFORMATION
  Report Type: 
  Country: None (occurrence: None)
  Receive Date: 20100222
  Receipt Date: 20100209
  Transmission Date: 20100710
  Serious: Yes (Hospitalization, Congenital Anomaly)
  Sender: FDA-Public Use
  Company Number: 1-21618668

PATIENT
  Age: 22 Month
  Sex: Female

DRUGS (1)
  1. DICLOFENAC SODIUM [Suspect]
     Indication: ABDOMINAL PAIN
     Dosage: 75MG PER DAY, TRANSPLACENTAL
     Route: 064

REACTIONS (8)
  - ANAL STENOSIS [None]
  - APLASIA CUTIS CONGENITA [None]
  - CONGENITAL JOINT MALFORMATION [None]
  - CONGENITAL NEUROLOGICAL DISORDER [None]
  - FOOT DEFORMITY [None]
  - GASTROINTESTINAL MALFORMATION [None]
  - MATERNAL DRUGS AFFECTING FOETUS [None]
  - RED BLOOD CELL SEDIMENTATION RATE INCREASED [None]
